FAERS Safety Report 9896033 (Version 1)
Quarter: 2014Q1

REPORT INFORMATION
  Report Type: Spontaneous
  Country: US (occurrence: US)
  Receive Date: 20140213
  Receipt Date: 20140213
  Transmission Date: 20141002
  Serious: No
  Sender: FDA-Public Use
  Company Number: US-BRISTOL-MYERS SQUIBB COMPANY-18802785

PATIENT
  Age: 62 Year
  Sex: Female
  Weight: 119.27 kg

DRUGS (1)
  1. ABATACEPT SUBQ INJECTION 125MG/ML [Suspect]
     Indication: RHEUMATOID ARTHRITIS
     Dosage: 1 DF: 125MG/ML.
     Route: 058
     Dates: start: 20121114, end: 20130215

REACTIONS (1)
  - Drug ineffective [Unknown]
